FAERS Safety Report 21332886 (Version 1)
Quarter: 2022Q3

REPORT INFORMATION
  Report Type: Other
  Country: GB (occurrence: GB)
  Receive Date: 20220914
  Receipt Date: 20220914
  Transmission Date: 20221027
  Serious: Yes (Other)
  Sender: FDA-Public Use
  Company Number: GB-MHRA-MED-202208301314549460-YTVFR

PATIENT

DRUGS (1)
  1. PRAMIPEXOLE DIHYDROCHLORIDE [Suspect]
     Active Substance: PRAMIPEXOLE DIHYDROCHLORIDE
     Indication: Muscle contractions involuntary
     Dosage: 88 MICROGRAM, HS (88MCG ON)
     Route: 065
     Dates: start: 20170623

REACTIONS (4)
  - Respiratory rate decreased [Recovered/Resolved]
  - Heart rate decreased [Recovered/Resolved]
  - Morbid thoughts [Unknown]
  - Visual impairment [Unknown]

NARRATIVE: CASE EVENT DATE: 20170601
